FAERS Safety Report 5597962-6 (Version None)
Quarter: 2008Q1

REPORT INFORMATION
  Report Type: 
  Country: None (occurrence: None)
  Receive Date: 20080122
  Receipt Date: 20080114
  Transmission Date: 20080703
  Serious: Yes (Other)
  Sender: FDA-Public Use
  Company Number: US-BAYER-US-2007-035922

PATIENT
  Age: 51 Year
  Sex: Female
  Weight: 118 kg

DRUGS (1)
  1. MAGNEVIST [Suspect]
     Indication: NUCLEAR MAGNETIC RESONANCE IMAGING
     Dosage: TOTAL DAILY DOSE: 20 ML  UNIT DOSE: 20 ML
     Route: 042
     Dates: start: 20070921, end: 20070921

REACTIONS (6)
  - ERYTHEMA [None]
  - EYE PRURITUS [None]
  - EYE SWELLING [None]
  - LACRIMATION INCREASED [None]
  - NASAL CONGESTION [None]
  - THROAT IRRITATION [None]
